FAERS Safety Report 14267885 (Version 2)
Quarter: 2017Q4

REPORT INFORMATION
  Report Type: Report from Study
  Country: BR (occurrence: BR)
  Receive Date: 20171211
  Receipt Date: 20171215
  Transmission Date: 20180321
  Serious: Yes (Death)
  Sender: FDA-Public Use
  Company Number: PHHY2017BR183170

PATIENT
  Sex: Male
  Weight: 16.8 kg

DRUGS (1)
  1. EXJADE [Suspect]
     Active Substance: DEFERASIROX
     Indication: SICKLE CELL ANAEMIA
     Dosage: 125 MG, QD
     Route: 048
     Dates: start: 2010

REACTIONS (3)
  - Multiple organ dysfunction syndrome [Fatal]
  - Atrophy [Unknown]
  - Cerebrovascular accident [Fatal]
